FAERS Safety Report 7007847-6 (Version None)
Quarter: 2010Q3

REPORT INFORMATION
  Report Type: 
  Country: None (occurrence: None)
  Receive Date: 20100922
  Receipt Date: 20100913
  Transmission Date: 20110219
  Serious: Yes (Hospitalization, Other)
  Sender: FDA-Public Use
  Company Number: US-ASTRAZENECA-2010SE42936

PATIENT
  Age: 74 Year
  Sex: Female
  Weight: 72.6 kg

DRUGS (8)
  1. TAMOXIFEN CITRATE [Suspect]
     Indication: BREAST CANCER
     Route: 048
     Dates: start: 19960101
  2. ARTHROTEC [Suspect]
     Indication: ARTHRITIS
     Route: 048
     Dates: start: 20000101, end: 20100119
  3. ARTHROTEC [Suspect]
     Route: 048
     Dates: end: 20100701
  4. ARTHROTEC [Suspect]
     Route: 048
     Dates: start: 20100801
  5. CALCIUM [Suspect]
     Route: 048
     Dates: start: 20100801
  6. ESOMEPRAZOLE MAGNESIUM [Concomitant]
     Indication: DYSPEPSIA
     Route: 048
  7. FENOFIBRATE [Concomitant]
     Indication: BLOOD CHOLESTEROL INCREASED
     Route: 048
  8. MULTI-VITAMINS [Concomitant]

REACTIONS (4)
  - FOOT FRACTURE [None]
  - HYPERPLASIA [None]
  - NEUROPATHY PERIPHERAL [None]
  - UPPER LIMB FRACTURE [None]
